FAERS Safety Report 8137611-6 (Version None)
Quarter: 2012Q1

REPORT INFORMATION
  Report Type: 
  Country: None (occurrence: None)
  Receive Date: 20120213
  Receipt Date: 20120206
  Transmission Date: 20120608
  Serious: Yes (Hospitalization)
  Sender: FDA-Public Use
  Company Number: 1000026935

PATIENT
  Age: 21 Year
  Sex: Female

DRUGS (5)
  1. WELLBUTRIN [Concomitant]
  2. KLONOPIN [Concomitant]
  3. VIIBRYD [Suspect]
     Indication: DEPRESSION
     Dosage: 10 MG (10 MG, 1 IN 1 D), ORAL
     Route: 048
     Dates: start: 20120107, end: 20120107
  4. ADDERALL (OBETROL) [Concomitant]
  5. BIRTH CONTROL (NOS) [Concomitant]

REACTIONS (3)
  - DYSTONIA [None]
  - HALLUCINATION, VISUAL [None]
  - CONFUSIONAL STATE [None]
